FAERS Safety Report 4876521-4 (Version None)
Quarter: 2006Q1

REPORT INFORMATION
  Report Type: 
  Country: None (occurrence: None)
  Receive Date: 20060110
  Receipt Date: 20030811
  Transmission Date: 20060701
  Serious: Yes (Other)
  Sender: FDA-Public Use
  Company Number: GB-GLAXOSMITHKLINE-B0306772A

PATIENT
  Sex: Female

DRUGS (3)
  1. SEROXAT [Suspect]
     Indication: DEPRESSION
     Route: 048
     Dates: start: 19960430
  2. PAROXETINE HYDROCHLORIDE [Suspect]
     Route: 065
  3. MIRTAZAPINE [Concomitant]
     Dosage: 30MG AT NIGHT
     Route: 065

REACTIONS (18)
  - AGGRESSION [None]
  - AGITATION [None]
  - BURNING SENSATION [None]
  - DIARRHOEA [None]
  - DRUG WITHDRAWAL SYNDROME [None]
  - EMOTIONAL DISTRESS [None]
  - FREQUENT BOWEL MOVEMENTS [None]
  - HOMICIDAL IDEATION [None]
  - HYPERHIDROSIS [None]
  - HYPOAESTHESIA ORAL [None]
  - ILLUSION [None]
  - IRRITABILITY [None]
  - LOSS OF LIBIDO [None]
  - NIGHTMARE [None]
  - OVERDOSE [None]
  - SUICIDAL IDEATION [None]
  - TEARFULNESS [None]
  - TREMOR [None]
